FAERS Safety Report 7892363-X (Version None)
Quarter: 2011Q4

REPORT INFORMATION
  Report Type: 
  Country: None (occurrence: None)
  Receive Date: 20111103
  Receipt Date: 20111103
  Transmission Date: 20120403
  Serious: Yes (Other)
  Sender: FDA-Public Use
  Company Number: None

PATIENT
  Age: 69 Year
  Sex: Male

DRUGS (5)
  1. SENNA [Concomitant]
  2. ZOLPIDEM [Concomitant]
  3. LYRICA [Concomitant]
  4. REVLIMID [Suspect]
     Indication: MULTIPLE MYELOMA
     Dosage: REVLIMID 10 MG DAILY ORALLY
     Route: 048
     Dates: start: 20110501
  5. OMEPRAZOLE [Concomitant]

REACTIONS (2)
  - THROMBOCYTOPENIA [None]
  - TREATMENT NONCOMPLIANCE [None]
